FAERS Safety Report 11519549 (Version 2)
Quarter: 2016Q1

REPORT INFORMATION
  Report Type: Spontaneous
  Country: US (occurrence: US)
  Receive Date: 20150918
  Receipt Date: 20160118
  Transmission Date: 20160525
  Serious: No
  Sender: FDA-Public Use
  Company Number: US-009507513-1509USA008490

PATIENT
  Age: 23 Year
  Sex: Female

DRUGS (1)
  1. NEXPLANON [Suspect]
     Active Substance: ETONOGESTREL
     Indication: CONTRACEPTION
     Dosage: 1 ROD / 3 YEARS; IN LEFT ARM
     Route: 059
     Dates: start: 20150616

REACTIONS (2)
  - Amenorrhoea [Unknown]
  - Implant site hypoaesthesia [Unknown]

NARRATIVE: CASE EVENT DATE: 201506
